FAERS Safety Report 7892058-2 (Version None)
Quarter: 2011Q4

REPORT INFORMATION
  Report Type: 
  Country: None (occurrence: None)
  Receive Date: 20111103
  Receipt Date: 20110815
  Transmission Date: 20120403
  Serious: No
  Sender: FDA-Public Use
  Company Number: US-AMGEN-USASP2011041528

PATIENT
  Age: 64 Year
  Sex: Female

DRUGS (9)
  1. LEFLUNOMIDE [Concomitant]
     Dosage: 10 MG, UNK
  2. CALCIUM D [Concomitant]
     Dosage: UNK
  3. ENBREL [Suspect]
     Indication: PRODUCT USED FOR UNKNOWN INDICATION
     Dosage: 50 MG, QWK
     Route: 058
  4. LOVAZA [Concomitant]
     Dosage: 340 MG, UNK
  5. PROTONIX [Concomitant]
     Dosage: 20 MG, UNK
  6. GLUCOSAMINE CHONDROITIN [Concomitant]
     Dosage: UNK
  7. ZETIA [Concomitant]
     Dosage: 10 MG, UNK
  8. MULTI-VITAMINS [Concomitant]
     Dosage: UNK
  9. FOLIC ACID [Concomitant]
     Dosage: 5 MG, UNK

REACTIONS (5)
  - INJECTION SITE REACTION [None]
  - INJECTION SITE SWELLING [None]
  - INJECTION SITE PRURITUS [None]
  - INJECTION SITE PAIN [None]
  - INJECTION SITE WARMTH [None]
